FAERS Safety Report 10201570 (Version 1)
Quarter: 2014Q2

REPORT INFORMATION
  Report Type: Spontaneous
  Country: US (occurrence: US)
  Receive Date: 20140528
  Receipt Date: 20140528
  Transmission Date: 20141212
  Serious: Yes (Other)
  Sender: FDA-Public Use
  Company Number: US-JNJFOC-20140512099

PATIENT
  Age: 14 Year
  Sex: Male

DRUGS (1)
  1. RISPERDAL [Suspect]
     Indication: AUTISM
     Route: 065

REACTIONS (5)
  - Self injurious behaviour [Unknown]
  - Speech disorder [Unknown]
  - Panic attack [Unknown]
  - Anger [Unknown]
  - Condition aggravated [Unknown]
